FAERS Safety Report 19385898 (Version 1)
Quarter: 2021Q2

REPORT INFORMATION
  Report Type: Spontaneous
  Country: US (occurrence: US)
  Receive Date: 20210605
  Receipt Date: 20210605
  Transmission Date: 20210717
  Serious: Yes (Life-Threatening, Disabling, Other)
  Sender: FDA-Public Use
  Company Number: None

PATIENT
  Age: 53 Year
  Sex: Female
  Weight: 59.4 kg

DRUGS (4)
  1. ESTROGEN [Concomitant]
     Active Substance: ESTROGENS
  2. LEVOTHYROXINE. [Concomitant]
     Active Substance: LEVOTHYROXINE
  3. NEURINTIN [Concomitant]
  4. LEVETIRACETAM. [Suspect]
     Active Substance: LEVETIRACETAM
     Indication: EPILEPSY
     Dosage: ?          QUANTITY:60 TABLET(S);?
     Route: 048

REACTIONS (5)
  - Anxiety [None]
  - Treatment noncompliance [None]
  - Insomnia [None]
  - Panic attack [None]
  - Seizure [None]

NARRATIVE: CASE EVENT DATE: 20210506
